FAERS Safety Report 20415423 (Version 5)
Quarter: 2022Q1

REPORT INFORMATION
  Report Type: Report from Study
  Country: BE (occurrence: None)
  Receive Date: 20220202
  Receipt Date: 20220317
  Transmission Date: 20220423
  Serious: Yes (Hospitalization)
  Sender: FDA-Public Use
  Company Number: BE-ROCHE-3013304

PATIENT
  Age: 57 Year
  Sex: Female
  Weight: 81.5 kg

DRUGS (17)
  1. ATEZOLIZUMAB [Suspect]
     Active Substance: ATEZOLIZUMAB
     Indication: HER2 positive breast cancer
     Dosage: START DATE OF MOST RECENT DOSE 1200 MG OF STUDY DRUG PRIOR TO AE AND SAE ON 12/JAN/2022
     Route: 041
     Dates: start: 20211020
  2. ADO-TRASTUZUMAB EMTANSINE [Suspect]
     Active Substance: ADO-TRASTUZUMAB EMTANSINE
     Indication: HER2 positive breast cancer
     Dosage: START DATE OF MOST RECENT DOSE (1200 MG/KG) OF STUDY DRUG PRIOR TO AE AND SAE ON 12/JAN/2022
     Route: 042
     Dates: start: 20211020
  3. FEMARA [Concomitant]
     Active Substance: LETROZOLE
     Indication: Breast cancer
     Route: 048
     Dates: start: 20211110
  4. DAFALGAN [Concomitant]
     Active Substance: ACETAMINOPHEN
     Indication: Pain
     Dates: start: 20210927
  5. DAFALGAN [Concomitant]
     Active Substance: ACETAMINOPHEN
     Indication: Prophylaxis
     Dates: start: 20211110
  6. VITAPANTOL [Concomitant]
     Indication: Epistaxis
     Dates: start: 20210703
  7. RHINOVITA [Concomitant]
     Indication: Epistaxis
     Dates: start: 20210708
  8. VAGISAN (BELGIUM) [Concomitant]
     Dates: start: 20210311
  9. PANTOPRAZOLE SODIUM [Concomitant]
     Active Substance: PANTOPRAZOLE SODIUM
     Indication: Prophylaxis
     Dates: start: 20211110
  10. IBUPROFEN [Concomitant]
     Active Substance: IBUPROFEN
     Indication: Prophylaxis
     Dates: start: 20211110
  11. NEBIVOLOL [Concomitant]
     Active Substance: NEBIVOLOL
     Dates: start: 20211201
  12. SOLU-MEDROL [Concomitant]
     Active Substance: METHYLPREDNISOLONE SODIUM SUCCINATE
     Indication: Prophylaxis
     Route: 042
     Dates: start: 20211222, end: 20211222
  13. SOLU-MEDROL [Concomitant]
     Active Substance: METHYLPREDNISOLONE SODIUM SUCCINATE
     Route: 042
     Dates: start: 20220112, end: 20220112
  14. ULTRA-K [Concomitant]
     Indication: Hypocalcaemia
     Dates: start: 20220126, end: 20220126
  15. SODIUM CHLORIDE [Concomitant]
     Active Substance: SODIUM CHLORIDE
     Indication: Hyponatraemia
     Dates: start: 20220125, end: 20220127
  16. NADROPARIN CALCIUM [Concomitant]
     Active Substance: NADROPARIN CALCIUM
     Indication: Prophylaxis
     Dates: start: 20220125, end: 20220127
  17. MOVICOL [Concomitant]
     Active Substance: POLYETHYLENE GLYCOL 3350\POTASSIUM CHLORIDE\SODIUM BICARBONATE\SODIUM CHLORIDE
     Indication: Constipation prophylaxis
     Dates: start: 20220128, end: 20220128

REACTIONS (1)
  - Neuropathy peripheral [Recovering/Resolving]

NARRATIVE: CASE EVENT DATE: 20220121
